FAERS Safety Report 8132558-3 (Version None)
Quarter: 2012Q1

REPORT INFORMATION
  Report Type: 
  Country: None (occurrence: None)
  Receive Date: 20120213
  Receipt Date: 20120208
  Transmission Date: 20120608
  Serious: Yes (Other)
  Sender: FDA-Public Use
  Company Number: US-PFIZER INC-2012020147

PATIENT
  Sex: Female
  Weight: 108.84 kg

DRUGS (15)
  1. LYRICA [Suspect]
     Indication: BURNING SENSATION
     Dosage: 300 MG, 2X/DAY
     Route: 048
     Dates: start: 20090101
  2. LYRICA [Suspect]
     Indication: PAIN
  3. LYRICA [Suspect]
     Indication: NERVOUS SYSTEM DISORDER
  4. ATIVAN [Concomitant]
     Dosage: 1 MG DAILY
  5. ADDERALL 5 [Concomitant]
     Dosage: 10 MG, 4 TO 5 TIMES/DAY
  6. POTASSIUM [Concomitant]
     Dosage: 20 MEQ, 2X/DAY
  7. CITALOPRAM [Concomitant]
     Dosage: 20 MG DAILY
  8. MAXZIDE [Concomitant]
     Dosage: 37.5 MG/25 MG, DAILY
  9. CALTRATE 600 + VITAMIN D [Concomitant]
     Dosage: 600/400 MG/UNITS TWO TIMES A DAY
  10. SINGULAIR [Concomitant]
     Dosage: 10 MG DAILY
  11. BUPROPION HYDROCHLORIDE [Concomitant]
     Dosage: 150 MG, DAILY
  12. LORATADINE [Concomitant]
     Dosage: 10 MG, DAILY
  13. LYRICA [Suspect]
     Indication: FIBROMYALGIA
  14. NEXIUM [Concomitant]
     Dosage: 40 MG, 2X/DAY
  15. ATENOLOL [Concomitant]
     Indication: HYPERTENSION
     Dosage: 50 MG, DAILY

REACTIONS (6)
  - BRAIN NEOPLASM [None]
  - PAIN [None]
  - DRUG INEFFECTIVE [None]
  - METASTASES TO LUNG [None]
  - MEMORY IMPAIRMENT [None]
  - METASTASES TO CENTRAL NERVOUS SYSTEM [None]
